FAERS Safety Report 22601581 (Version 2)
Quarter: 2023Q2

REPORT INFORMATION
  Report Type: Spontaneous
  Country: US (occurrence: US)
  Receive Date: 20230614
  Receipt Date: 20230615
  Transmission Date: 20230721
  Serious: Yes (Life-Threatening, Hospitalization, Other)
  Sender: FDA-Public Use
  Company Number: US-PFIZER INC-202300220976

PATIENT
  Sex: Female

DRUGS (1)
  1. DEPO-PROVERA [Suspect]
     Active Substance: MEDROXYPROGESTERONE ACETATE
     Indication: Mental disorder
     Dosage: UNK, EVERY 3 MONTHS

REACTIONS (5)
  - Sepsis [Recovered/Resolved]
  - Multiple sclerosis [Unknown]
  - Mania [Unknown]
  - Off label use [Unknown]
  - Drug ineffective for unapproved indication [Unknown]
